FAERS Safety Report 7335606-3 (Version None)
Quarter: 2011Q1

REPORT INFORMATION
  Report Type: 
  Country: None (occurrence: None)
  Receive Date: 20110307
  Receipt Date: 20110301
  Transmission Date: 20110831
  Serious: Yes (Congenital Anomaly)
  Sender: FDA-Public Use
  Company Number: A0687258A

PATIENT
  Sex: Male
  Weight: 1.5 kg

DRUGS (7)
  1. PAXIL CR [Suspect]
     Indication: STRESS
     Dosage: 12.5MG PER DAY
     Route: 064
     Dates: start: 20020701
  2. XENADRINE [Concomitant]
     Route: 064
  3. TUMS [Concomitant]
     Route: 064
  4. PRENATAL VITAMINS [Concomitant]
     Route: 064
  5. PAXIL [Suspect]
     Route: 064
  6. ALEVE [Concomitant]
     Route: 064
  7. ACETAMINOPHEN [Concomitant]
     Route: 064

REACTIONS (3)
  - BICUSPID AORTIC VALVE [None]
  - CONGENITAL AORTIC STENOSIS [None]
  - DRUG EXPOSURE DURING PREGNANCY [None]
